FAERS Safety Report 18685612 (Version 2)
Quarter: 2021Q1

REPORT INFORMATION
  Report Type: Spontaneous
  Country: AR (occurrence: AR)
  Receive Date: 20201231
  Receipt Date: 20210107
  Transmission Date: 20210419
  Serious: Yes (Hospitalization, Other)
  Sender: FDA-Public Use
  Company Number: AR-AMGEN-ARGSP2020211465

PATIENT
  Age: 59 Year
  Sex: Female

DRUGS (1)
  1. ENBREL [Suspect]
     Active Substance: ETANERCEPT
     Indication: RHEUMATOID ARTHRITIS
     Dosage: 50 MILLIGRAM, QWK
     Route: 065
     Dates: start: 20190923

REACTIONS (5)
  - Spinal fracture [Unknown]
  - Mobility decreased [Unknown]
  - Malaise [Unknown]
  - Pain [Unknown]
  - Infection [Unknown]

NARRATIVE: CASE EVENT DATE: 2019
